FAERS Safety Report 18048485 (Version 1)
Quarter: 2020Q3

REPORT INFORMATION
  Report Type: Spontaneous
  Country: CN (occurrence: CN)
  Receive Date: 20200721
  Receipt Date: 20200721
  Transmission Date: 20201103
  Serious: Yes (Other)
  Sender: FDA-Public Use
  Company Number: CN-ROCHE-2643539

PATIENT
  Age: 47 Year
  Sex: Female

DRUGS (7)
  1. TACROLIMUS. [Concomitant]
     Active Substance: TACROLIMUS
     Indication: RENAL TRANSPLANT
  2. MOXIFLOXACIN HYDROCHLORIDE. [Concomitant]
     Active Substance: MOXIFLOXACIN HYDROCHLORIDE
  3. ISONIAZID. [Concomitant]
     Active Substance: ISONIAZID
     Dates: start: 2020
  4. CELLCEPT [Suspect]
     Active Substance: MYCOPHENOLATE MOFETIL\MYCOPHENOLATE MOFETIL HYDROCHLORIDE
     Indication: RENAL TRANSPLANT
     Route: 065
  5. CEFTRIAXONE. [Suspect]
     Active Substance: CEFTRIAXONE
     Indication: ANTI-INFECTIVE THERAPY
     Route: 065
     Dates: start: 2020
  6. METHYLPREDNISOLONE SODIUM SUCCINATE. [Concomitant]
     Active Substance: METHYLPREDNISOLONE SODIUM SUCCINATE
  7. BASILIXIMAB [Concomitant]
     Active Substance: BASILIXIMAB

REACTIONS (12)
  - Pneumonia [Recovered/Resolved]
  - Arteriosclerosis coronary artery [Recovered/Resolved]
  - Sinusitis [Recovered/Resolved]
  - Goitre [Recovered/Resolved]
  - Vomiting [Recovered/Resolved]
  - Paranasal cyst [Recovered/Resolved]
  - Cerebral ischaemia [Recovered/Resolved]
  - Pleural calcification [Recovered/Resolved]
  - Nausea [Recovered/Resolved]
  - Pleural thickening [Recovered/Resolved]
  - Pyrexia [Recovered/Resolved]
  - Osteoma [Recovered/Resolved]
